FAERS Safety Report 7731079-7 (Version None)
Quarter: 2011Q3

REPORT INFORMATION
  Report Type: 
  Country: None (occurrence: None)
  Receive Date: 20110906
  Receipt Date: 20110906
  Transmission Date: 20111222
  Serious: Yes (Life-Threatening)
  Sender: FDA-Public Use
  Company Number: None

PATIENT
  Age: 56 Year
  Sex: Female
  Weight: 72.574 kg

DRUGS (1)
  1. VYTORIN [Suspect]
     Indication: BLOOD CHOLESTEROL INCREASED
     Dosage: 1 TABLEY DAILY
     Dates: start: 20050901, end: 20110820

REACTIONS (7)
  - FLATULENCE [None]
  - CHEST PAIN [None]
  - ABDOMINAL PAIN UPPER [None]
  - RENAL PAIN [None]
  - DYSPNOEA [None]
  - FATIGUE [None]
  - CHROMATURIA [None]
